FAERS Safety Report 24975466 (Version 3)
Quarter: 2025Q1

REPORT INFORMATION
  Report Type: Spontaneous
  Country: JP (occurrence: JP)
  Receive Date: 20250217
  Receipt Date: 20250306
  Transmission Date: 20250408
  Serious: Yes (Other)
  Sender: GILEAD
  Company Number: JP-GILEAD-2025-0703626

PATIENT
  Age: 86 Year
  Sex: Female

DRUGS (10)
  1. VEKLURY [Suspect]
     Active Substance: REMDESIVIR
     Indication: COVID-19
     Route: 041
     Dates: start: 20250124, end: 20250124
  2. VEKLURY [Suspect]
     Active Substance: REMDESIVIR
     Route: 041
     Dates: start: 20250125, end: 20250126
  3. VEKLURY [Suspect]
     Active Substance: REMDESIVIR
     Route: 041
     Dates: start: 20250131, end: 20250202
  4. AMLODIPINE BESYLATE [Concomitant]
     Active Substance: AMLODIPINE BESYLATE
  5. MOSAPRIDE CITRATE [Concomitant]
     Active Substance: MOSAPRIDE CITRATE
  6. FUROSEMIDE [Concomitant]
     Active Substance: FUROSEMIDE
  7. ALESION [Concomitant]
     Active Substance: EPINASTINE HYDROCHLORIDE
  8. OLMESARTAN MEDOXOMIL [Concomitant]
     Active Substance: OLMESARTAN MEDOXOMIL
  9. LOKELMA [Concomitant]
     Active Substance: SODIUM ZIRCONIUM CYCLOSILICATE
  10. VONOPRAZAN FUMARATE [Concomitant]
     Active Substance: VONOPRAZAN FUMARATE

REACTIONS (8)
  - Bile duct stone [Unknown]
  - Gamma-glutamyltransferase increased [Unknown]
  - Pneumonia [Unknown]
  - Pneumonia aspiration [Unknown]
  - Dysphagia [Unknown]
  - COVID-19 [Unknown]
  - Cholelithiasis [Unknown]
  - Post-acute COVID-19 syndrome [Unknown]

NARRATIVE: CASE EVENT DATE: 20250101
